FAERS Safety Report 7492953-2 (Version None)
Quarter: 2011Q2

REPORT INFORMATION
  Report Type: 
  Country: None (occurrence: None)
  Receive Date: 20110520
  Receipt Date: 20110511
  Transmission Date: 20111010
  Serious: Yes (Life-Threatening, Hospitalization)
  Sender: FDA-Public Use
  Company Number: GB-RANBAXY-2011R1-44338

PATIENT
  Age: 75 Year

DRUGS (2)
  1. DONEPEZIL [Suspect]
     Indication: DEMENTIA ALZHEIMER'S TYPE
     Dosage: 10 MG, UNK
     Route: 048
     Dates: start: 20110331, end: 20110427
  2. LEVOTHYROXINE SODIUM [Concomitant]
     Indication: HYPERTHYROIDISM
     Dosage: 100 UG, UNK
     Route: 048

REACTIONS (2)
  - CARDIAC TELEMETRY ABNORMAL [None]
  - BRADYCARDIA [None]
